FAERS Safety Report 10281132 (Version 1)
Quarter: 2014Q3

REPORT INFORMATION
  Report Type: Spontaneous
  Country: US (occurrence: None)
  Receive Date: 20140702
  Receipt Date: 20140702
  Transmission Date: 20150326
  Serious: Yes (Life-Threatening, Hospitalization)
  Sender: FDA-Public Use
  Company Number: None

PATIENT
  Age: 78 Year
  Sex: Female
  Weight: 56.25 kg

DRUGS (6)
  1. TOPROL XL [Concomitant]
     Active Substance: METOPROLOL SUCCINATE
  2. VITAMIN E [Concomitant]
     Active Substance: .ALPHA.-TOCOPHEROL
  3. PROBIOTICS [Concomitant]
     Active Substance: PROBIOTICS NOS
  4. AMIODARONE [Suspect]
     Active Substance: AMIODARONE
     Indication: ATRIAL FIBRILLATION
     Route: 048
     Dates: start: 20120430, end: 20120510
  5. COUMADIN [Concomitant]
     Active Substance: WARFARIN SODIUM
  6. CALCIUM WITH VIT D [Concomitant]

REACTIONS (2)
  - Lung disorder [None]
  - Acute respiratory distress syndrome [None]

NARRATIVE: CASE EVENT DATE: 20120510
